FAERS Safety Report 21530266 (Version 1)
Quarter: 2022Q4

REPORT INFORMATION
  Report Type: Spontaneous
  Country: US (occurrence: None)
  Receive Date: 20221028
  Receipt Date: 20221028
  Transmission Date: 20230112
  Serious: Yes (Life-Threatening, Hospitalization)
  Sender: FDA-Public Use
  Company Number: None

PATIENT

DRUGS (2)
  1. GLIMEPIRIDE [Suspect]
     Active Substance: GLIMEPIRIDE
  2. INSULIN DETEMIR [Suspect]
     Active Substance: INSULIN DETEMIR

REACTIONS (3)
  - Seizure [None]
  - Hypoglycaemia [None]
  - White blood cell disorder [None]

NARRATIVE: CASE EVENT DATE: 20210520
